FAERS Safety Report 7087023-1 (Version None)
Quarter: 2010Q4

REPORT INFORMATION
  Report Type: 
  Country: None (occurrence: None)
  Receive Date: 20101106
  Receipt Date: 20101005
  Transmission Date: 20110411
  Serious: No
  Sender: FDA-Public Use
  Company Number: US-WYE-H17979210

PATIENT
  Sex: Female
  Weight: 54.93 kg

DRUGS (8)
  1. PREMARIN [Suspect]
     Indication: VULVOVAGINAL ERYTHEMA
     Dosage: NOT PROVIDED, BUT USED DAILY
     Route: 067
     Dates: start: 20090101, end: 20100101
  2. CLOBETASOL PROPIONATE [Suspect]
     Indication: RASH PAPULAR
     Dosage: NOT PROVIDED
     Route: 065
     Dates: start: 20100601
  3. DILTIAZEM [Concomitant]
  4. PRILOSEC [Concomitant]
  5. ROPINIROLE [Concomitant]
  6. LEVOTHROID [Concomitant]
  7. ESTRACE [Suspect]
     Indication: VULVOVAGINAL ERYTHEMA
     Dosage: NOT PROVIDED
     Route: 067
  8. DIOVAN [Concomitant]

REACTIONS (3)
  - LICHEN SCLEROSUS [None]
  - VULVOVAGINAL BURNING SENSATION [None]
  - VULVOVAGINAL ERYTHEMA [None]
